FAERS Safety Report 19413373 (Version 2)
Quarter: 2022Q3

REPORT INFORMATION
  Report Type: Report from Study
  Country: US (occurrence: US)
  Receive Date: 20210614
  Receipt Date: 20220912
  Transmission Date: 20221027
  Serious: Yes (Other)
  Sender: FDA-Public Use
  Company Number: US-TAKEDA-2021TUS035734

PATIENT
  Sex: Female
  Weight: 87 kg

DRUGS (3)
  1. MYDAYIS [Suspect]
     Active Substance: AMPHETAMINE ASPARTATE\AMPHETAMINE SULFATE\DEXTROAMPHETAMINE SACCHARATE\DEXTROAMPHETAMINE SULFATE
     Indication: Product used for unknown indication
     Dosage: UNK
     Route: 065
  2. VYVANSE [Suspect]
     Active Substance: LISDEXAMFETAMINE DIMESYLATE
     Indication: Attention deficit hyperactivity disorder
     Dosage: 70 MILLIGRAM
     Route: 065
     Dates: end: 20210526
  3. IRBESARTAN [Concomitant]
     Active Substance: IRBESARTAN
     Indication: Blood pressure increased
     Dosage: UNK
     Route: 065

REACTIONS (6)
  - Knee arthroplasty [Unknown]
  - Joint stiffness [Unknown]
  - Joint swelling [Unknown]
  - Hypoaesthesia [Unknown]
  - Therapeutic product effect variable [Unknown]
  - Product dose omission issue [Unknown]
